FAERS Safety Report 10162607 (Version 1)
Quarter: 2014Q2

REPORT INFORMATION
  Report Type: Spontaneous
  Country: US (occurrence: US)
  Receive Date: 20140509
  Receipt Date: 20140509
  Transmission Date: 20141212
  Serious: No
  Sender: FDA-Public Use
  Company Number: US-TEVA-480825USA

PATIENT
  Age: 30 Year
  Sex: Female

DRUGS (6)
  1. PLAN B ONE-STEP [Suspect]
     Indication: POST COITAL CONTRACEPTION
     Dosage: 1.5 MILLIGRAM DAILY;
     Route: 048
     Dates: start: 20140505, end: 20140505
  2. CALCIUM [Concomitant]
     Indication: MINERAL SUPPLEMENTATION
  3. VITAMIN C [Concomitant]
     Indication: VITAMIN SUPPLEMENTATION
  4. VITAMIN D [Concomitant]
     Indication: VITAMIN SUPPLEMENTATION
  5. GUMMY MULTIVITAMIN [Concomitant]
     Indication: VITAMIN SUPPLEMENTATION
  6. METFORMIN [Concomitant]
     Indication: GLUCOSE TOLERANCE IMPAIRED
     Dates: start: 201309, end: 201404

REACTIONS (1)
  - Nausea [Recovered/Resolved]
